FAERS Safety Report 12401787 (Version 1)
Quarter: 2016Q2

REPORT INFORMATION
  Report Type: Spontaneous
  Country: US (occurrence: US)
  Receive Date: 20160525
  Receipt Date: 20160525
  Transmission Date: 20160815
  Serious: No
  Sender: FDA-Public Use
  Company Number: US-PFIZER INC-2016241798

PATIENT
  Age: 8 Year
  Sex: Male
  Weight: 19 kg

DRUGS (5)
  1. MAXITROL [Concomitant]
     Active Substance: DEXAMETHASONE\NEOMYCIN SULFATE\POLYMYXIN B SULFATE
     Indication: CONJUNCTIVITIS
     Dosage: 1 DF, 2X/DAY, ONE DROP IN LEFT EYE
     Route: 047
  2. SINGULAIR [Concomitant]
     Active Substance: MONTELUKAST SODIUM
     Indication: HYPERSENSITIVITY
  3. SINGULAIR [Concomitant]
     Active Substance: MONTELUKAST SODIUM
     Indication: ASTHMA
     Dosage: UNK
     Dates: start: 2016
  4. ALBUTEROL. [Concomitant]
     Active Substance: ALBUTEROL
     Dosage: 3 DF, UNK, 3 PUMPS EVERY 4 TO 6 HOURS
  5. GENOTROPIN MQ [Suspect]
     Active Substance: SOMATROPIN
     Indication: FAILURE TO THRIVE
     Dosage: UNK
     Dates: start: 2016

REACTIONS (6)
  - Condition aggravated [Unknown]
  - Seasonal allergy [Unknown]
  - Asthma [Unknown]
  - Wrong technique in product usage process [Not Recovered/Not Resolved]
  - Injection site haemorrhage [Unknown]
  - Injection site pain [Not Recovered/Not Resolved]

NARRATIVE: CASE EVENT DATE: 2016
